FAERS Safety Report 7893211-4 (Version None)
Quarter: 2011Q4

REPORT INFORMATION
  Report Type: 
  Country: None (occurrence: None)
  Receive Date: 20111104
  Receipt Date: 20111028
  Transmission Date: 20120403
  Serious: Yes (Other)
  Sender: FDA-Public Use
  Company Number: PHEH2011US08040

PATIENT
  Sex: Female

DRUGS (1)
  1. RECLAST [Suspect]
     Indication: OSTEOPOROSIS
     Route: 042
     Dates: start: 20100501

REACTIONS (5)
  - LOWER LIMB FRACTURE [None]
  - MUSCULOSKELETAL PAIN [None]
  - FALL [None]
  - UPPER LIMB FRACTURE [None]
  - ARTHRALGIA [None]
